FAERS Safety Report 8483949-2 (Version None)
Quarter: 2012Q3

REPORT INFORMATION
  Report Type: 
  Country: None (occurrence: None)
  Receive Date: 20120703
  Receipt Date: 20120627
  Transmission Date: 20120928
  Serious: No
  Sender: FDA-Public Use
  Company Number: US-PFIZER INC-2012155721

PATIENT
  Sex: Male

DRUGS (1)
  1. XALKORI [Suspect]
     Indication: BRONCHIAL CARCINOMA
     Dosage: 250 MG, 2X/DAY

REACTIONS (4)
  - MALAISE [None]
  - BRONCHIAL CARCINOMA [None]
  - LYMPHADENOPATHY [None]
  - DISEASE PROGRESSION [None]
